FAERS Safety Report 10533567 (Version 1)
Quarter: 2014Q4

REPORT INFORMATION
  Report Type: Spontaneous
  Country: US (occurrence: US)
  Receive Date: 20141022
  Receipt Date: 20141022
  Transmission Date: 20150529
  Serious: Yes (Hospitalization)
  Sender: FDA-Public Use
  Company Number: US-BRISTOL-MYERS SQUIBB COMPANY-21504055

PATIENT
  Age: 65 Year
  Sex: Male
  Weight: 83.9 kg

DRUGS (3)
  1. CRESTOR [Concomitant]
     Active Substance: ROSUVASTATIN CALCIUM
  2. WARFARIN SODIUM. [Suspect]
     Active Substance: WARFARIN SODIUM
  3. XARELTO [Suspect]
     Active Substance: RIVAROXABAN

REACTIONS (3)
  - Hypotension [Unknown]
  - Headache [Unknown]
  - Dizziness [Unknown]
